FAERS Safety Report 4272568-X (Version None)
Quarter: 2004Q1

REPORT INFORMATION
  Report Type: 
  Country: None (occurrence: None)
  Receive Date: 20040114
  Receipt Date: 20040114
  Transmission Date: 20041129
  Serious: Yes (Hospitalization, Other)
  Sender: FDA-Public Use
  Company Number: None

PATIENT
  Age: 48 Year
  Sex: Male
  Weight: 75 kg

DRUGS (3)
  1. FOSPHENYTOIN SODIUM [Suspect]
     Indication: COMPLEX PARTIAL SEIZURES
     Dosage: 1500 MG IV ONCE OVER 30 MIN
     Route: 042
     Dates: start: 20031015
  2. LAMOTRIGINE [Concomitant]
  3. NORTRIPTYLINE HCL [Concomitant]

REACTIONS (6)
  - DEPRESSED LEVEL OF CONSCIOUSNESS [None]
  - DISORIENTATION [None]
  - PRURITUS [None]
  - SOMNOLENCE [None]
  - THROAT TIGHTNESS [None]
  - TINNITUS [None]
